FAERS Safety Report 5861357-8 (Version None)
Quarter: 2008Q3

REPORT INFORMATION
  Report Type: 
  Country: None (occurrence: None)
  Receive Date: 20080827
  Receipt Date: 20080428
  Transmission Date: 20090109
  Serious: No
  Sender: FDA-Public Use
  Company Number: US-ABBOTT-08P-163-0449387-00

PATIENT
  Sex: Female
  Weight: 71.732 kg

DRUGS (8)
  1. COATED PDS [Suspect]
     Indication: BLOOD CHOLESTEROL INCREASED
     Dates: start: 20080201, end: 20080421
  2. COATED PDS [Suspect]
     Dates: start: 20080421
  3. LEVOTHYROXINE SODIUM [Concomitant]
     Indication: HYPOTHYROIDISM
     Route: 048
  4. HYDROCHLOROTHIAZIDE [Concomitant]
     Indication: HYPERTENSION
     Route: 048
  5. VERAPAMIL [Concomitant]
     Indication: HYPERTENSION
     Route: 048
  6. MULTI-VITAMIN [Concomitant]
     Indication: VITAMIN SUPPLEMENTATION
     Route: 048
  7. GLUCOSAMINE [Concomitant]
     Indication: ARTHROPATHY
     Route: 048
  8. XANTOFYL [Concomitant]
     Indication: DRUG USE FOR UNKNOWN INDICATION
     Route: 048

REACTIONS (4)
  - EAR CONGESTION [None]
  - HEADACHE [None]
  - POSTNASAL DRIP [None]
  - RASH [None]
